FAERS Safety Report 14603525 (Version 1)
Quarter: 2018Q1

REPORT INFORMATION
  Report Type: Spontaneous
  Country: AU (occurrence: AU)
  Receive Date: 20180306
  Receipt Date: 20180306
  Transmission Date: 20180509
  Serious: Yes (Other)
  Sender: FDA-Public Use
  Company Number: AU-BRISTOL-MYERS SQUIBB COMPANY-BMS-2017-081939

PATIENT
  Age: 49 Year
  Sex: Female

DRUGS (1)
  1. TRIAMCINOLONE ACETONIDE. [Suspect]
     Active Substance: TRIAMCINOLONE ACETONIDE
     Indication: SCAR
     Route: 058

REACTIONS (5)
  - Skin infection [Recovered/Resolved]
  - Punctate keratitis [Unknown]
  - Wound secretion [Unknown]
  - Cellulitis orbital [Recovering/Resolving]
  - Exophthalmos [Unknown]
